FAERS Safety Report 6524317-X (Version None)
Quarter: 2009Q4

REPORT INFORMATION
  Report Type: 
  Country: None (occurrence: None)
  Receive Date: 20091231
  Receipt Date: 20091228
  Transmission Date: 20100525
  Serious: Yes (Other)
  Sender: FDA-Public Use
  Company Number: NO-MERCK-0912NOR00203

PATIENT
  Age: 29 Month
  Sex: Male

DRUGS (3)
  1. SINGULAIR [Suspect]
     Indication: ASTHMA
     Route: 048
     Dates: start: 20091201
  2. BUDESONIDE [Concomitant]
     Indication: ASTHMA
     Route: 048
  3. ALBUTEROL SULFATE [Concomitant]
     Indication: ASTHMA
     Route: 065

REACTIONS (2)
  - LIP HAEMORRHAGE [None]
  - SWELLING FACE [None]
